FAERS Safety Report 23584317 (Version 1)
Quarter: 2024Q1

REPORT INFORMATION
  Report Type: Spontaneous
  Country: CA (occurrence: CA)
  Receive Date: 20240301
  Receipt Date: 20240301
  Transmission Date: 20240410
  Serious: Yes (Other)
  Sender: FDA-Public Use
  Company Number: CA-BEH-2024169027

PATIENT
  Age: 10 Year
  Sex: Male

DRUGS (1)
  1. PRIVIGEN [Suspect]
     Active Substance: HUMAN IMMUNOGLOBULIN G
     Indication: Kawasaki^s disease
     Dosage: UNK
     Route: 041

REACTIONS (6)
  - Anxiety [Unknown]
  - Chills [Unknown]
  - Dyspnoea [Unknown]
  - Emotional disorder [Unknown]
  - Hypertension [Unknown]
  - Tachycardia [Unknown]
